FAERS Safety Report 7466160-3 (Version None)
Quarter: 2011Q2

REPORT INFORMATION
  Report Type: 
  Country: None (occurrence: None)
  Receive Date: 20110509
  Receipt Date: 20110426
  Transmission Date: 20111010
  Serious: Yes (Hospitalization)
  Sender: FDA-Public Use
  Company Number: PHHY2011DE37070

PATIENT
  Sex: Male
  Weight: 68 kg

DRUGS (11)
  1. DIOVAN [Suspect]
     Indication: HYPERTENSION
     Dosage: 1 DF, QD
     Route: 048
  2. TIMOLOL [Concomitant]
     Indication: GLAUCOMA
     Dosage: 1 DF, QD
     Route: 048
     Dates: start: 20050318
  3. CALCIUM CHANNEL BLOCKERS [Concomitant]
     Dosage: UNK
     Dates: end: 20100111
  4. ASPIRIN [Concomitant]
     Indication: PERIPHERAL ARTERIAL OCCLUSIVE DISEASE
     Dosage: 1 DF, QD
     Route: 048
     Dates: start: 20090416
  5. HYDROCHLOROTHIAZIDE [Suspect]
     Dosage: 1 DF, QD
     Route: 048
     Dates: start: 20100225
  6. METFORMIN [Concomitant]
     Indication: DIABETES MELLITUS
     Dosage: 1 DF, QD
     Route: 048
     Dates: start: 20050318
  7. ALISKIREN [Suspect]
     Dosage: 300 MG, QD
     Route: 048
     Dates: start: 20090416, end: 20100630
  8. DIURETICS [Concomitant]
     Dosage: UNK
  9. ALISKIREN [Suspect]
     Indication: HYPERTENSION
     Dosage: 150 MG, QD
     Route: 048
     Dates: end: 20090415
  10. METOPROLOL TARTRATE [Suspect]
     Indication: HYPERTENSION
     Dosage: 1 DF, QD
     Route: 048
     Dates: start: 20050318
  11. AMLODIPINE BESYLATE [Concomitant]
     Dosage: UNK
     Dates: start: 20100702

REACTIONS (2)
  - SYNCOPE [None]
  - DIZZINESS [None]
